FAERS Safety Report 7608723-8 (Version None)
Quarter: 2011Q2

REPORT INFORMATION
  Report Type: 
  Country: None (occurrence: None)
  Receive Date: 20110609
  Receipt Date: 20091006
  Transmission Date: 20111010
  Serious: Yes (Death, Other)
  Sender: FDA-Public Use
  Company Number: PHHY2009JP06797

PATIENT
  Sex: Female

DRUGS (11)
  1. CODEINE SULFATE [Concomitant]
     Dosage: 60 MG
     Route: 048
     Dates: start: 20050921, end: 20080105
  2. FLUOROURACIL [Concomitant]
     Indication: BREAST CANCER
     Dosage: 700 MG
     Route: 042
     Dates: start: 20071120, end: 20071127
  3. OMEPRAZOLE [Concomitant]
     Dosage: 20 MG
     Route: 048
     Dates: start: 20051012, end: 20080105
  4. MAGMITT [Concomitant]
     Dosage: 750 MG
     Route: 048
     Dates: start: 20050921, end: 20080105
  5. CYCLOPHOSPHAMIDE [Concomitant]
     Indication: BREAST CANCER
     Route: 048
     Dates: start: 20071120, end: 20071127
  6. FERROUS CITRATE [Concomitant]
     Dosage: 50 MG, UNK
     Route: 048
     Dates: start: 20060111, end: 20080105
  7. XELODA [Concomitant]
     Dosage: 2400 MG, UNK
     Route: 048
     Dates: start: 20040915, end: 20070322
  8. NAVELBINE [Concomitant]
     Dosage: 35 MG
     Route: 042
     Dates: start: 20070417, end: 20071022
  9. METHOTREXATE [Concomitant]
     Indication: BREAST CANCER
     Dosage: 56 MG, UNK
     Route: 042
     Dates: start: 20071120, end: 20071127
  10. CGP 42446 [Suspect]
     Indication: METASTASES TO BONE
  11. CGP 42446 [Suspect]
     Indication: BREAST CANCER
     Dosage: 4 MG, QMO
     Route: 042
     Dates: start: 20070105, end: 20080105

REACTIONS (3)
  - METASTATIC PAIN [None]
  - BLOOD UREA DECREASED [None]
  - NEOPLASM MALIGNANT [None]
